FAERS Safety Report 4299650-5 (Version None)
Quarter: 2004Q1

REPORT INFORMATION
  Report Type: 
  Country: None (occurrence: None)
  Receive Date: 20040217
  Receipt Date: 20040217
  Transmission Date: 20041129
  Serious: Yes (Death)
  Sender: FDA-Public Use
  Company Number: None

PATIENT
  Age: 57 Year
  Sex: Female
  Weight: 98.4306 kg

DRUGS (3)
  1. TAXOL [Suspect]
     Indication: OVARIAN CANCER
     Dosage: 350 MG IV
     Route: 042
     Dates: start: 20040129
  2. CARBOPLATIN [Suspect]
     Indication: OVARIAN CANCER
     Dosage: 565 MG IV
     Route: 042
     Dates: start: 20040129
  3. GEMZAR [Suspect]
     Indication: OVARIAN CANCER
     Dosage: 1600 MG IV DAY 1 + 8
     Route: 042
     Dates: start: 20040129

REACTIONS (19)
  - ABNORMAL FAECES [None]
  - ACIDOSIS [None]
  - CARDIAC ARREST [None]
  - DIARRHOEA [None]
  - ESCHERICHIA SEPSIS [None]
  - FEBRILE NEUTROPENIA [None]
  - HYPOTENSION [None]
  - INTERSTITIAL LUNG DISEASE [None]
  - NEUTROPENIA [None]
  - OLIGURIA [None]
  - PANCYTOPENIA [None]
  - PULMONARY OEDEMA [None]
  - PYREXIA [None]
  - RENAL FAILURE [None]
  - RESPIRATORY FAILURE [None]
  - SUPRAVENTRICULAR TACHYCARDIA [None]
  - TACHYPNOEA [None]
  - THROMBOCYTOPENIA [None]
  - WHITE BLOOD CELL COUNT INCREASED [None]
